FAERS Safety Report 5542017-X (Version None)
Quarter: 2007Q4

REPORT INFORMATION
  Report Type: 
  Country: None (occurrence: None)
  Receive Date: 20071210
  Receipt Date: 20071127
  Transmission Date: 20080405
  Serious: Yes (Hospitalization)
  Sender: FDA-Public Use
  Company Number: US-MERCK-0711USA04995

PATIENT
  Age: 61 Year
  Sex: Male

DRUGS (4)
  1. DECADRON [Suspect]
     Route: 065
  2. REVLIMID [Suspect]
     Indication: MULTIPLE MYELOMA
     Route: 048
     Dates: start: 20061018, end: 20061201
  3. REVLIMID [Suspect]
     Route: 048
     Dates: start: 20070209, end: 20070201
  4. REVLIMID [Suspect]
     Route: 048
     Dates: start: 20070312

REACTIONS (5)
  - ANXIETY [None]
  - DEPRESSION [None]
  - NAUSEA [None]
  - NEUTROPENIA [None]
  - VOMITING [None]
